FAERS Safety Report 14284257 (Version 2)
Quarter: 2018Q1

REPORT INFORMATION
  Report Type: Report from Study
  Country: CA (occurrence: CA)
  Receive Date: 20171214
  Receipt Date: 20180104
  Transmission Date: 20180509
  Serious: Yes (Other)
  Sender: FDA-Public Use
  Company Number: CA-REGENERON PHARMACEUTICALS, INC.-2017-29022

PATIENT

DRUGS (2)
  1. EYLEA [Suspect]
     Active Substance: AFLIBERCEPT
     Indication: NEOVASCULAR AGE-RELATED MACULAR DEGENERATION
     Dosage: UNK
     Dates: start: 20160906
  2. EYLEA [Suspect]
     Active Substance: AFLIBERCEPT
     Dosage: LAST EYLEA INJECTION
     Dates: start: 20171115, end: 20171115

REACTIONS (2)
  - Visual impairment [Unknown]
  - Retinal disorder [Unknown]
